FAERS Safety Report 10152144 (Version 2)
Quarter: 2014Q2

REPORT INFORMATION
  Report Type: Spontaneous
  Country: JP (occurrence: JP)
  Receive Date: 20140505
  Receipt Date: 20140528
  Transmission Date: 20141212
  Serious: Yes (Other)
  Sender: FDA-Public Use
  Company Number: PHHY2014JP052913

PATIENT
  Age: 81 Year
  Sex: Female

DRUGS (3)
  1. GLIVEC [Suspect]
     Indication: CHRONIC MYELOID LEUKAEMIA
     Dosage: 400 MG DAILY
     Route: 048
     Dates: start: 200804, end: 200901
  2. GLIVEC [Suspect]
     Dosage: 200 MG, DAILY
     Route: 048
  3. STEROID [Concomitant]
     Indication: DERMATOMYOSITIS

REACTIONS (4)
  - Lumbar vertebral fracture [Unknown]
  - Gait disturbance [Unknown]
  - Face oedema [Recovered/Resolved]
  - Oedema peripheral [Recovered/Resolved]
